FAERS Safety Report 8233603-7 (Version None)
Quarter: 2012Q1

REPORT INFORMATION
  Report Type: 
  Country: None (occurrence: None)
  Receive Date: 20120326
  Receipt Date: 20120315
  Transmission Date: 20120608
  Serious: Yes (Hospitalization)
  Sender: FDA-Public Use
  Company Number: PHEH2009US10747

PATIENT
  Sex: Female
  Weight: 78.912 kg

DRUGS (3)
  1. MORPHINE [Concomitant]
     Indication: SICKLE CELL ANAEMIA
     Dosage: UNK UKN, Q3H
     Route: 048
  2. EXJADE [Suspect]
     Indication: IRON OVERLOAD
     Dosage: 500 MG, BID
     Route: 048
     Dates: start: 20100621
  3. EXJADE [Suspect]
     Indication: SICKLE CELL ANAEMIA
     Dosage: 1000 MG, QD
     Route: 048
     Dates: start: 20060224

REACTIONS (8)
  - SICKLE CELL ANAEMIA WITH CRISIS [None]
  - HEPATIC ENZYME INCREASED [None]
  - SPLENIC INFARCTION [None]
  - HAEMOGLOBIN DECREASED [None]
  - HAEMATOCRIT DECREASED [None]
  - ALANINE AMINOTRANSFERASE INCREASED [None]
  - BLOOD BILIRUBIN INCREASED [None]
  - ASPARTATE AMINOTRANSFERASE INCREASED [None]
